FAERS Safety Report 10423656 (Version 1)
Quarter: 2014Q3

REPORT INFORMATION
  Report Type: Report from Study
  Country: CA (occurrence: CA)
  Receive Date: 20140902
  Receipt Date: 20140902
  Transmission Date: 20150326
  Serious: Yes (Death, Hospitalization, Other)
  Sender: FDA-Public Use
  Company Number: CA-ABBVIE-14K-028-1276435-00

PATIENT
  Age: 70 Year
  Sex: Female

DRUGS (1)
  1. HUMIRA [Suspect]
     Active Substance: ADALIMUMAB
     Indication: PSORIASIS
     Route: 058
     Dates: start: 20120706

REACTIONS (13)
  - Cardiac arrest [Unknown]
  - Haemothorax [Unknown]
  - Obstructive shock [Unknown]
  - Cardiac perforation [Unknown]
  - Pericardial haemorrhage [Unknown]
  - Heart injury [Unknown]
  - Hypovolaemic shock [Unknown]
  - Death [Fatal]
  - Oesophagogastric fundoplasty [Unknown]
  - Haematoma [Unknown]
  - Chest pain [Unknown]
  - Shock [Unknown]
  - Circulatory collapse [Unknown]

NARRATIVE: CASE EVENT DATE: 20140411
